FAERS Safety Report 13144018 (Version 1)
Quarter: 2017Q1

REPORT INFORMATION
  Report Type: Report from Study
  Country: US (occurrence: US)
  Receive Date: 20170124
  Receipt Date: 20170124
  Transmission Date: 20170428
  Serious: Yes (Death)
  Sender: FDA-Public Use
  Company Number: US-ROCHE-1883443

PATIENT
  Age: 69 Year
  Sex: Male

DRUGS (2)
  1. MEPERIDINE [Concomitant]
     Active Substance: MEPERIDINE
     Route: 065
  2. DIAZEPAM. [Suspect]
     Active Substance: DIAZEPAM
     Indication: SEDATION
     Route: 042
     Dates: start: 1987

REACTIONS (1)
  - Death [Fatal]
